FAERS Safety Report 20796377 (Version 1)
Quarter: 2022Q2

REPORT INFORMATION
  Report Type: Spontaneous
  Country: US (occurrence: US)
  Receive Date: 20220506
  Receipt Date: 20220506
  Transmission Date: 20220721
  Serious: No
  Sender: FDA-Public Use
  Company Number: US-PFIZER INC-2019434628

PATIENT
  Age: 66 Year
  Sex: Female

DRUGS (3)
  1. RETACRIT [Suspect]
     Active Substance: EPOETIN ALFA-EPBX
     Indication: Gallbladder cancer
     Dosage: 40000 IU, MONTHLY
  2. RETACRIT [Suspect]
     Active Substance: EPOETIN ALFA-EPBX
     Dosage: 40000 IU ONCE A WEEK EVERY 4 WEEKS
  3. RETACRIT [Suspect]
     Active Substance: EPOETIN ALFA-EPBX
     Dosage: 40000 IU, ONCE EVERY 4 WEEKS
     Route: 058

REACTIONS (2)
  - Aphonia [Unknown]
  - Off label use [Unknown]
